FAERS Safety Report 21906957 (Version 1)
Quarter: 2023Q1

REPORT INFORMATION
  Report Type: Spontaneous
  Country: CZ (occurrence: CZ)
  Receive Date: 20230125
  Receipt Date: 20230125
  Transmission Date: 20230418
  Serious: Yes (Other)
  Sender: FDA-Public Use
  Company Number: CZ-BAYER-2023P004495

PATIENT
  Age: 38 Year
  Sex: Male

DRUGS (1)
  1. BETAFERON [Suspect]
     Active Substance: INTERFERON BETA-1B
     Indication: Multiple sclerosis
     Dosage: 1 DF, QOD
     Route: 058
     Dates: start: 2003

REACTIONS (4)
  - Multiple sclerosis [None]
  - Psychotic disorder [None]
  - Persecutory delusion [None]
  - Anxiety [None]

NARRATIVE: CASE EVENT DATE: 20110101
